FAERS Safety Report 5124147-X (Version None)
Quarter: 2006Q4

REPORT INFORMATION
  Report Type: 
  Country: None (occurrence: None)
  Receive Date: 20061010
  Receipt Date: 20060502
  Transmission Date: 20070319
  Serious: No
  Sender: FDA-Public Use
  Company Number: US-BRISTOL-MYERS SQUIBB COMPANY-13364450

PATIENT
  Age: 57 Year
  Sex: Female
  Weight: 96 kg

DRUGS (2)
  1. AVAPRO [Suspect]
     Indication: HYPERTENSION
     Route: 048
     Dates: start: 20050101, end: 20060501
  2. METOPROLOL TARTRATE [Concomitant]
     Indication: HYPERTENSION

REACTIONS (3)
  - MUSCLE SPASMS [None]
  - MUSCULAR WEAKNESS [None]
  - PAIN IN EXTREMITY [None]
